FAERS Safety Report 8936367 (Version 2)
Quarter: 2013Q1

REPORT INFORMATION
  Report Type: Spontaneous
  Country: US (occurrence: US)
  Receive Date: 20121130
  Receipt Date: 20130228
  Transmission Date: 20140127
  Serious: No
  Sender: FDA-Public Use
  Company Number: US-ABBOTT-12P-163-1001884-00

PATIENT
  Sex: Male

DRUGS (2)
  1. ANDROGEL [Suspect]
     Indication: PRODUCT USED FOR UNKNOWN INDICATION
     Dosage: 1 PUMP ON EACH ARM
     Route: 061
  2. ANDROGEL [Suspect]
     Dosage: 3 PUMPS TOTAL ON BOTH ARMS
     Route: 061

REACTIONS (4)
  - Abdominal pain [Unknown]
  - Renal pain [Unknown]
  - Musculoskeletal pain [Unknown]
  - Drug effect decreased [Unknown]
